FAERS Safety Report 5705719-8 (Version None)
Quarter: 2008Q2

REPORT INFORMATION
  Report Type: 
  Country: None (occurrence: None)
  Receive Date: 20080415
  Receipt Date: 20080409
  Transmission Date: 20081010
  Serious: Yes (Death, Hospitalization)
  Sender: FDA-Public Use
  Company Number: A0722673A

PATIENT
  Age: 32 Year
  Sex: Female
  Weight: 70 kg

DRUGS (1)
  1. AMOXICILLIN + CLAVULANATE POTASSIUM [Suspect]
     Indication: SINUSITIS
     Route: 048
     Dates: start: 20080315, end: 20080317

REACTIONS (6)
  - BLOOD BILIRUBIN ABNORMAL [None]
  - ENCEPHALOPATHY [None]
  - HEPATITIS [None]
  - NAUSEA [None]
  - PROTHROMBIN LEVEL ABNORMAL [None]
  - TRANSAMINASES ABNORMAL [None]
